FAERS Safety Report 21027351 (Version 1)
Quarter: 2022Q2

REPORT INFORMATION
  Report Type: Spontaneous
  Country: US (occurrence: None)
  Receive Date: 20220629
  Receipt Date: 20220629
  Transmission Date: 20220721
  Serious: Yes (Hospitalization)
  Sender: FDA-Public Use
  Company Number: None

PATIENT
  Age: 38 Year
  Sex: Female
  Weight: 72.9 kg

DRUGS (1)
  1. VENETOCLAX [Suspect]
     Active Substance: VENETOCLAX
     Indication: Leukaemia
     Dosage: FREQUENCY : DAILY;?
     Route: 048
     Dates: start: 20220621, end: 20220627

REACTIONS (5)
  - Anaemia [None]
  - Hypotension [None]
  - Blood culture positive [None]
  - Vascular device infection [None]
  - Staphylococcus test positive [None]

NARRATIVE: CASE EVENT DATE: 20220621
